FAERS Safety Report 10216033 (Version 1)
Quarter: 2014Q2

REPORT INFORMATION
  Report Type: Spontaneous
  Country: FR (occurrence: FR)
  Receive Date: 20140604
  Receipt Date: 20140604
  Transmission Date: 20141212
  Serious: Yes (Hospitalization)
  Sender: FDA-Public Use
  Company Number: FR-JNJFOC-20140600879

PATIENT
  Age: 84 Year
  Sex: Male

DRUGS (8)
  1. INEXIUM [Concomitant]
     Route: 065
  2. XATRAL [Concomitant]
     Route: 065
  3. ALPRAZOLAM [Concomitant]
     Route: 065
  4. FLECAINE [Concomitant]
     Route: 065
  5. LEVEMIR [Concomitant]
     Route: 065
  6. AMLOR [Concomitant]
     Route: 065
  7. CARDENSIEL [Concomitant]
     Route: 065
  8. XARELTO [Suspect]
     Indication: PRODUCT USED FOR UNKNOWN INDICATION
     Route: 048
     Dates: end: 201403

REACTIONS (1)
  - Tubulointerstitial nephritis [Recovering/Resolving]
